FAERS Safety Report 16370937 (Version 1)
Quarter: 2019Q2

REPORT INFORMATION
  Report Type: Spontaneous
  Country: US (occurrence: US)
  Receive Date: 20190423
  Receipt Date: 20190423
  Transmission Date: 20190711
  Serious: Yes (Death, Hospitalization, Other)
  Sender: FDA-Public Use
  Company Number: None

PATIENT
  Age: 67 Year
  Sex: Male

DRUGS (3)
  1. 5FU [Suspect]
     Active Substance: FLUOROURACIL
  2. CARBOPLATIN. [Suspect]
     Active Substance: CARBOPLATIN
  3. ERBITUX [Suspect]
     Active Substance: CETUXIMAB
     Indication: TONSIL CANCER
     Route: 058
     Dates: start: 20190225, end: 20190325

REACTIONS (1)
  - Myocardial infarction [None]
